FAERS Safety Report 4365740-1 (Version None)
Quarter: 2004Q2

REPORT INFORMATION
  Report Type: 
  Country: None (occurrence: None)
  Receive Date: 20040527
  Receipt Date: 20030822
  Transmission Date: 20050107
  Serious: Yes (Other)
  Sender: FDA-Public Use
  Company Number: BE-JNJFOC-20030700019

PATIENT
  Age: 3 Month
  Sex: Female
  Weight: 6.17 kg

DRUGS (2)
  1. PREPULSID [Suspect]
     Route: 049
     Dates: start: 20030423, end: 20030627
  2. ZANTAC [Concomitant]
     Indication: CRYING
     Route: 049
     Dates: start: 20030415

REACTIONS (2)
  - ELECTROCARDIOGRAM QT CORRECTED INTERVAL PROLONGED [None]
  - HEART RATE INCREASED [None]
